FAERS Safety Report 4647405-1 (Version None)
Quarter: 2005Q2

REPORT INFORMATION
  Report Type: 
  Country: None (occurrence: None)
  Receive Date: 20050427
  Receipt Date: 20050427
  Transmission Date: 20051028
  Serious: Yes (Hospitalization)
  Sender: FDA-Public Use
  Company Number: None

PATIENT
  Age: 72 Year
  Sex: Male
  Weight: 128.8 kg

DRUGS (9)
  1. COLESTIPOL [Suspect]
     Indication: HYPERCHOLESTEROLAEMIA
     Dosage: 4 GRAMS, 2 GRAMS, ORAL
     Route: 048
     Dates: start: 20050126, end: 20050202
  2. RANITIDINE HCL [Concomitant]
  3. LISINOPRIL [Concomitant]
  4. POTASSIUM CHLORIDE [Concomitant]
  5. GABAPENTIN [Concomitant]
  6. COLESTIPOL HCL [Concomitant]
  7. ETODOLAC [Concomitant]
  8. GLIPIZIDE [Concomitant]
  9. INSULIN NPH HUMAN 100 U/ML  INJ NOVOLIN N [Concomitant]

REACTIONS (1)
  - PHARYNGEAL OEDEMA [None]
